FAERS Safety Report 5705870-2 (Version None)
Quarter: 2008Q2

REPORT INFORMATION
  Report Type: 
  Country: None (occurrence: None)
  Receive Date: 20080415
  Receipt Date: 20080409
  Transmission Date: 20081010
  Serious: Yes (Hospitalization, Disabling)
  Sender: FDA-Public Use
  Company Number: US-MERCK-0705USA01552

PATIENT
  Age: 61 Year
  Sex: Female

DRUGS (2)
  1. FOSAMAX [Suspect]
     Indication: PROPHYLAXIS
     Route: 048
     Dates: start: 19990101, end: 20060101
  2. ESTROGENS (UNSPECIFIED) [Concomitant]
     Route: 065
     Dates: start: 19910101

REACTIONS (9)
  - ADVERSE EVENT [None]
  - ANXIETY [None]
  - BLADDER DISORDER [None]
  - DEPRESSION [None]
  - FAILURE OF IMPLANT [None]
  - INSOMNIA [None]
  - PAIN IN JAW [None]
  - PANIC ATTACK [None]
  - STRESS [None]
